FAERS Safety Report 17058387 (Version 2)
Quarter: 2021Q2

REPORT INFORMATION
  Report Type: Spontaneous
  Country: CA (occurrence: CA)
  Receive Date: 20191121
  Receipt Date: 20210614
  Transmission Date: 20210716
  Serious: Yes (Death)
  Sender: FDA-Public Use
  Company Number: CA-ROCHE-2470322

PATIENT
  Age: 63 Year
  Sex: Male
  Weight: 101 kg

DRUGS (24)
  1. ALTACE [Concomitant]
     Active Substance: RAMIPRIL
  2. ATORVASTATIN [Concomitant]
     Active Substance: ATORVASTATIN
  3. METHYLPREDNISOLONE. [Concomitant]
     Active Substance: METHYLPREDNISOLONE
     Route: 042
  4. NEXIUM [Concomitant]
     Active Substance: ESOMEPRAZOLE MAGNESIUM
  5. LEFLUNOMIDE. [Suspect]
     Active Substance: LEFLUNOMIDE
     Indication: PRODUCT USED FOR UNKNOWN INDICATION
     Route: 065
  6. LEFLUNOMIDE. [Suspect]
     Active Substance: LEFLUNOMIDE
     Route: 065
  7. ACETAMINOPHEN. [Concomitant]
     Active Substance: ACETAMINOPHEN
     Route: 048
  8. ACETAMINOPHEN. [Concomitant]
     Active Substance: ACETAMINOPHEN
     Route: 048
  9. RITUXAN [Suspect]
     Active Substance: RITUXIMAB
     Route: 042
  10. METHOTREXATE. [Suspect]
     Active Substance: METHOTREXATE
     Indication: PRODUCT USED FOR UNKNOWN INDICATION
     Route: 065
  11. REMICADE [Suspect]
     Active Substance: INFLIXIMAB
     Indication: PRODUCT USED FOR UNKNOWN INDICATION
     Route: 065
  12. ASA [Concomitant]
     Active Substance: ASPIRIN
  13. LIPITOR [Concomitant]
     Active Substance: ATORVASTATIN CALCIUM
  14. RISPERIDONE. [Concomitant]
     Active Substance: RISPERIDONE
  15. SOLIFENACIN [Concomitant]
     Active Substance: SOLIFENACIN
  16. RITUXAN [Suspect]
     Active Substance: RITUXIMAB
     Indication: RHEUMATOID ARTHRITIS
     Route: 042
  17. CAFFEINE. [Concomitant]
     Active Substance: CAFFEINE
  18. OXYCODONE [Concomitant]
     Active Substance: OXYCODONE
  19. ACETAMINOPHEN. [Concomitant]
     Active Substance: ACETAMINOPHEN
     Route: 048
  20. METOPROLOL. [Concomitant]
     Active Substance: METOPROLOL
  21. CITALOPRAM [Concomitant]
     Active Substance: CITALOPRAM HYDROBROMIDE
  22. DIPHENHYDRAMINE. [Concomitant]
     Active Substance: DIPHENHYDRAMINE
     Route: 048
  23. RAMIPRIL. [Concomitant]
     Active Substance: RAMIPRIL
  24. ATIVAN [Concomitant]
     Active Substance: LORAZEPAM

REACTIONS (17)
  - Oxygen saturation decreased [Fatal]
  - Rales [Fatal]
  - Wheezing [Fatal]
  - Pneumonia [Fatal]
  - Death [Fatal]
  - Pulmonary oedema [Fatal]
  - Diverticulum [Fatal]
  - Influenza [Fatal]
  - Lung disorder [Fatal]
  - Cough [Fatal]
  - Rheumatoid arthritis [Fatal]
  - Weight increased [Fatal]
  - Malaise [Fatal]
  - Diarrhoea [Fatal]
  - Prostatic disorder [Fatal]
  - Prostatomegaly [Fatal]
  - Gastrooesophageal reflux disease [Fatal]
